FAERS Safety Report 14361269 (Version 1)
Quarter: 2018Q1

REPORT INFORMATION
  Report Type: Report from Study
  Country: FR (occurrence: FR)
  Receive Date: 20180108
  Receipt Date: 20180108
  Transmission Date: 20180509
  Serious: Yes (Other)
  Sender: FDA-Public Use
  Company Number: FR-ROCHE-2046992

PATIENT

DRUGS (3)
  1. FLUDARABINE [Suspect]
     Active Substance: FLUDARABINE PHOSPHATE
     Indication: CHRONIC LYMPHOCYTIC LEUKAEMIA
     Route: 065
  2. RITUXIMAB. [Suspect]
     Active Substance: RITUXIMAB
     Indication: CHRONIC LYMPHOCYTIC LEUKAEMIA
     Route: 065
  3. CYCLOPHOSPHAMIDE. [Suspect]
     Active Substance: CYCLOPHOSPHAMIDE
     Indication: CHRONIC LYMPHOCYTIC LEUKAEMIA
     Route: 065

REACTIONS (15)
  - Malignant melanoma [Unknown]
  - Myelodysplastic syndrome [Unknown]
  - Basal cell carcinoma [Unknown]
  - Lung neoplasm malignant [Unknown]
  - Cervix carcinoma [Unknown]
  - Viral infection [Unknown]
  - Prostate cancer [Unknown]
  - Renal cancer [Unknown]
  - Pneumocystis jirovecii infection [Unknown]
  - Aspergillus infection [Unknown]
  - Hypogammaglobulinaemia [Unknown]
  - Neutropenia [Unknown]
  - Bacterial infection [Unknown]
  - Squamous cell carcinoma [Unknown]
  - Infection [Unknown]
